FAERS Safety Report 4478497-0 (Version None)
Quarter: 2004Q4

REPORT INFORMATION
  Report Type: 
  Country: None (occurrence: None)
  Receive Date: 20041019
  Receipt Date: 20040413
  Transmission Date: 20050328
  Serious: Yes (Hospitalization, Other)
  Sender: FDA-Public Use
  Company Number: GB-AMGEN-US073275

PATIENT
  Sex: Male
  Weight: 70 kg

DRUGS (5)
  1. ENBREL [Suspect]
     Indication: RHEUMATOID ARTHRITIS
     Route: 058
     Dates: start: 20040121, end: 20040415
  2. CELEBREX [Concomitant]
  3. CO-CODAMOL [Concomitant]
  4. LOSEC [Concomitant]
  5. METHYLPREDNISOLONE [Concomitant]

REACTIONS (1)
  - MYOCARDIAL INFARCTION [None]
